FAERS Safety Report 7415878-7 (Version None)
Quarter: 2011Q2

REPORT INFORMATION
  Report Type: 
  Country: None (occurrence: None)
  Receive Date: 20110414
  Receipt Date: 20110405
  Transmission Date: 20111010
  Serious: Yes (Hospitalization)
  Sender: FDA-Public Use
  Company Number: US-ASTRAZENECA-2011SE07780

PATIENT
  Age: 66 Year
  Sex: Female
  Weight: 77.6 kg

DRUGS (4)
  1. VIMOVO [Suspect]
     Indication: BACK PAIN
     Dosage: 500MG/20MG BID
     Route: 048
     Dates: start: 20110124, end: 20110124
  2. ZIAC [Concomitant]
  3. NEXIUM [Suspect]
     Route: 048
  4. NAPROXEN [Concomitant]

REACTIONS (3)
  - RASH [None]
  - ANAPHYLACTIC SHOCK [None]
  - SYNCOPE [None]
